FAERS Safety Report 8450403-3 (Version None)
Quarter: 2012Q2

REPORT INFORMATION
  Report Type: 
  Country: None (occurrence: None)
  Receive Date: 20120614
  Receipt Date: 20120614
  Transmission Date: 20120825
  Serious: Yes (Hospitalization)
  Sender: FDA-Public Use
  Company Number: None

PATIENT
  Sex: Female
  Weight: 115 kg

DRUGS (3)
  1. DOXORUBICIN HYDROCHLORIDE [Suspect]
     Dosage: 130 MG
     Dates: end: 20120524
  2. CYCLOPHOSPHAMIDE [Suspect]
     Dosage: 1340 MG
     Dates: end: 20120524
  3. NEULASTA [Suspect]
     Dosage: 6 MG
     Dates: end: 20120525

REACTIONS (4)
  - IMPLANT SITE REACTION [None]
  - DISCOMFORT [None]
  - IMPLANT SITE ERYTHEMA [None]
  - NEUTROPENIA [None]
